FAERS Safety Report 25305109 (Version 1)
Quarter: 2025Q2

REPORT INFORMATION
  Report Type: Spontaneous
  Country: RU (occurrence: RU)
  Receive Date: 20250513
  Receipt Date: 20250513
  Transmission Date: 20250717
  Serious: Yes (Other)
  Sender: NOVARTIS
  Company Number: RU-002147023-NVSC2025RU075967

PATIENT
  Age: 26 Year
  Sex: Male

DRUGS (2)
  1. TRILEPTAL [Suspect]
     Active Substance: OXCARBAZEPINE
     Indication: Schizophrenia
     Dosage: 150 MG, TID
     Route: 048
     Dates: start: 20240504, end: 20250506
  2. AGOMELATINE [Concomitant]
     Active Substance: AGOMELATINE
     Indication: Schizophrenia
     Dosage: 50 MG, QD
     Route: 048
     Dates: start: 20240504

REACTIONS (1)
  - Dysuria [Recovering/Resolving]

NARRATIVE: CASE EVENT DATE: 20250424
